FAERS Safety Report 13127429 (Version 2)
Quarter: 2017Q1

REPORT INFORMATION
  Report Type: Spontaneous
  Country: US (occurrence: US)
  Receive Date: 20170118
  Receipt Date: 20170206
  Transmission Date: 20170428
  Serious: Yes (Other)
  Sender: FDA-Public Use
  Company Number: US-BAYER-2017-006432

PATIENT
  Age: 21 Year
  Sex: Female
  Weight: 94.79 kg

DRUGS (1)
  1. MIRENA [Suspect]
     Active Substance: LEVONORGESTREL
     Indication: CONTRACEPTION
     Dosage: 20 MCG/24HR, CONT
     Route: 015
     Dates: start: 20140401, end: 20170112

REACTIONS (5)
  - Device issue [None]
  - Device expulsion [None]
  - Device breakage [Unknown]
  - Complication of device removal [None]
  - Vaginal discharge [None]

NARRATIVE: CASE EVENT DATE: 20170111
